FAERS Safety Report 4506212-0 (Version None)
Quarter: 2004Q4

REPORT INFORMATION
  Report Type: 
  Country: None (occurrence: None)
  Receive Date: 20041119
  Receipt Date: 20030605
  Transmission Date: 20050328
  Serious: Yes (Disabling)
  Sender: FDA-Public Use
  Company Number: US-MERCK-0306USA00832

PATIENT
  Age: 40 Year
  Sex: Female
  Weight: 148 kg

DRUGS (5)
  1. VICODIN [Concomitant]
     Indication: ARTHRALGIA
     Route: 048
     Dates: start: 20000201
  2. FLEXERIL [Concomitant]
     Indication: ARTHRALGIA
     Route: 048
     Dates: start: 20000201
  3. FLEXERIL [Concomitant]
     Indication: MUSCLE SPASMS
     Route: 048
     Dates: start: 20000201
  4. VIOXX [Suspect]
     Indication: ARTHRALGIA
     Route: 048
     Dates: start: 20000201
  5. VIOXX [Suspect]
     Indication: INFLAMMATION
     Route: 048
     Dates: start: 20000201

REACTIONS (21)
  - ABDOMINAL PAIN UPPER [None]
  - ADVERSE EVENT [None]
  - ARTHRALGIA [None]
  - BACK PAIN [None]
  - BUTTOCK PAIN [None]
  - DIFFICULTY IN WALKING [None]
  - FALL [None]
  - GASTRITIS [None]
  - HAEMATOCHEZIA [None]
  - HIATUS HERNIA [None]
  - INSOMNIA [None]
  - INTERVERTEBRAL DISC PROTRUSION [None]
  - LIMB DISCOMFORT [None]
  - LOOSE STOOLS [None]
  - NAUSEA [None]
  - OEDEMA PERIPHERAL [None]
  - OSTEOARTHRITIS [None]
  - POST LAMINECTOMY SYNDROME [None]
  - RADICULITIS LUMBOSACRAL [None]
  - SACROILIITIS [None]
  - VOMITING [None]
